FAERS Safety Report 20847793 (Version 2)
Quarter: 2022Q2

REPORT INFORMATION
  Report Type: Spontaneous
  Country: US (occurrence: US)
  Receive Date: 20220519
  Receipt Date: 20220613
  Transmission Date: 20220721
  Serious: No
  Sender: FDA-Public Use
  Company Number: US-BRISTOL-MYERS SQUIBB COMPANY-2022-018637

PATIENT
  Age: 63 Year
  Sex: Male

DRUGS (14)
  1. REVLIMID [Suspect]
     Active Substance: LENALIDOMIDE
     Indication: Plasma cell myeloma
     Dosage: TAKE 1 CAPSULE BY MOUTH DAILY FOR 21 DAYS THEN TAKE 7 DAYS OFF,REPEAT  EVERY 28 DAYS
     Route: 048
     Dates: start: 20191219
  2. REVLIMID [Suspect]
     Active Substance: LENALIDOMIDE
     Dosage: FREQ : 21 DAYS ON AND  7 DAYS OFF?MAINTENANCE THERAPY
     Route: 048
     Dates: start: 201907
  3. AMBIEN TAB 10 MG [Concomitant]
     Indication: Product used for unknown indication
  4. ASPIRIN LOW TAB 81 MG EC [Concomitant]
     Indication: Product used for unknown indication
  5. CYMBALTA CAP 20 MG [Concomitant]
     Indication: Product used for unknown indication
  6. LEVEMIR INJ [Concomitant]
     Indication: Product used for unknown indication
  7. LOSARTAN POT TAB 25 MG [Concomitant]
     Indication: Product used for unknown indication
  8. METFORMIN TAB 1000MG [Concomitant]
     Indication: Product used for unknown indication
  9. NEXIUM CAP 40 MG [Concomitant]
     Indication: Product used for unknown indication
  10. NORVASC TAB 5 MG [Concomitant]
     Indication: Product used for unknown indication
  11. OXYCODONE TAB 5 MG [Concomitant]
     Indication: Product used for unknown indication
  12. SIMVASTATIN TAB 80 MG [Concomitant]
     Indication: Product used for unknown indication
  13. TRILPIX CAP 45 MG [Concomitant]
     Indication: Product used for unknown indication
  14. VITAMIN D CAP 50000 UNIT [Concomitant]
     Indication: Product used for unknown indication

REACTIONS (1)
  - Nausea [Unknown]

NARRATIVE: CASE EVENT DATE: 20220524
